FAERS Safety Report 11474670 (Version 1)
Quarter: 2015Q3

REPORT INFORMATION
  Report Type: Spontaneous
  Country: US (occurrence: None)
  Receive Date: 20150908
  Receipt Date: 20150908
  Transmission Date: 20151125
  Serious: Yes (Other)
  Sender: FDA-Public Use
  Company Number: None

PATIENT
  Age: 34 Year
  Sex: Female
  Weight: 72.58 kg

DRUGS (2)
  1. NUVARING [Suspect]
     Active Substance: ETHINYL ESTRADIOL\ETONOGESTREL
     Indication: CONTRACEPTION
     Dosage: 1 RING FOR 3 WEEKS VAGINAL
     Route: 067
     Dates: start: 20150802, end: 20150823
  2. NUVARING [Suspect]
     Active Substance: ETHINYL ESTRADIOL\ETONOGESTREL
     Indication: MENSTRUATION IRREGULAR
     Dosage: 1 RING FOR 3 WEEKS VAGINAL
     Route: 067
     Dates: start: 20150802, end: 20150823

REACTIONS (5)
  - Depression [None]
  - Mood swings [None]
  - Impaired work ability [None]
  - Headache [None]
  - Migraine [None]
